FAERS Safety Report 14485022 (Version 2)
Quarter: 2018Q2

REPORT INFORMATION
  Report Type: Spontaneous
  Country: US (occurrence: US)
  Receive Date: 20180205
  Receipt Date: 20180430
  Transmission Date: 20180711
  Serious: No
  Sender: FDA-Public Use
  Company Number: US-PFIZER INC-2018045435

PATIENT
  Age: 62 Year
  Sex: Female

DRUGS (8)
  1. OXYCODONE HYDROCHLORIDE. [Concomitant]
     Active Substance: OXYCODONE HYDROCHLORIDE
     Dosage: UNK
  2. IBRANCE [Suspect]
     Active Substance: PALBOCICLIB
     Indication: SPINAL FRACTURE
     Dosage: 125 MG, CYCLIC (DAILY WITH FOOD FOR 21 DAYS ON THEN OFF FOR 7 DAYS)
     Route: 048
     Dates: start: 20180104
  3. IBRANCE [Suspect]
     Active Substance: PALBOCICLIB
     Dosage: 125 MG, CYCLIC, (1 CAPSULE, EVERY DAY WITH FOOD, FOR 21 DAYS ON, THEN OFF FOR 7 DAYS)
     Route: 048
  4. ANASTROZOLE. [Concomitant]
     Active Substance: ANASTROZOLE
     Dosage: UNK
  5. LEVOFLOXACIN. [Concomitant]
     Active Substance: LEVOFLOXACIN
     Dosage: UNK
  6. POLYETHYLENE GLYCOL 3350. [Concomitant]
     Active Substance: POLYETHYLENE GLYCOL 3350
     Dosage: UNK
  7. AMLODIPINE BESYLATE. [Concomitant]
     Active Substance: AMLODIPINE BESYLATE
     Dosage: UNK
  8. DRONABINOL. [Concomitant]
     Active Substance: DRONABINOL
     Dosage: UNK

REACTIONS (6)
  - Abdominal pain upper [Unknown]
  - Disease recurrence [Not Recovered/Not Resolved]
  - Decreased appetite [Recovering/Resolving]
  - Product use in unapproved indication [Unknown]
  - Nausea [Recovering/Resolving]
  - Urinary tract infection [Not Recovered/Not Resolved]

NARRATIVE: CASE EVENT DATE: 2018
